FAERS Safety Report 4970209-7 (Version None)
Quarter: 2006Q2

REPORT INFORMATION
  Report Type: 
  Country: None (occurrence: None)
  Receive Date: 20060412
  Receipt Date: 20060404
  Transmission Date: 20061013
  Serious: Yes (Hospitalization)
  Sender: FDA-Public Use
  Company Number: US-JNJFOC-20051204004

PATIENT
  Sex: Female
  Weight: 95.26 kg

DRUGS (5)
  1. DURAGESIC-100 [Suspect]
     Route: 062
     Dates: start: 20050101
  2. DURAGESIC-100 [Suspect]
     Route: 062
     Dates: start: 20050101
  3. DURAGESIC-100 [Suspect]
     Route: 062
     Dates: start: 20050101
  4. DURAGESIC-100 [Suspect]
     Route: 062
     Dates: start: 20050101
  5. HYDROCODONE [Concomitant]
     Indication: PAIN
     Dosage: AS NECESSARY
     Route: 048
     Dates: start: 20050101

REACTIONS (2)
  - HYPERHIDROSIS [None]
  - SHOULDER PAIN [None]
